FAERS Safety Report 8069969-0 (Version None)
Quarter: 2012Q1

REPORT INFORMATION
  Report Type: 
  Country: None (occurrence: None)
  Receive Date: 20120125
  Receipt Date: 20120117
  Transmission Date: 20120608
  Serious: Yes (Hospitalization)
  Sender: FDA-Public Use
  Company Number: US-ASTELLAS-2011US005768

PATIENT
  Sex: Female
  Weight: 60 kg

DRUGS (9)
  1. ERLOTINIB HYDROCHLORIDE [Suspect]
     Indication: NON-SMALL CELL LUNG CANCER METASTATIC
     Dosage: 150 MG, UID/QD
     Route: 048
     Dates: start: 20110811, end: 20110912
  2. COMBIVENT [Concomitant]
     Indication: PRODUCT USED FOR UNKNOWN INDICATION
     Dosage: 2 DF, TID
     Route: 055
  3. ERLOTINIB HYDROCHLORIDE [Suspect]
     Dosage: 75 MG, 3-25 MG TABLETS, UID/QD
     Route: 048
     Dates: start: 20111013
  4. NORVASC [Concomitant]
     Indication: PRODUCT USED FOR UNKNOWN INDICATION
     Dosage: 5 MG, UID/QD
     Route: 048
  5. MULTI-VITAMINS [Concomitant]
     Indication: PRODUCT USED FOR UNKNOWN INDICATION
     Dosage: 500-250 UG, UID/QD
     Route: 048
  6. MIRALAX [Concomitant]
     Indication: PRODUCT USED FOR UNKNOWN INDICATION
     Dosage: 17 G, UID/QD
     Route: 048
  7. AMLODIPINE BESYLATE [Concomitant]
     Indication: PRODUCT USED FOR UNKNOWN INDICATION
     Dosage: 5 MG, UID/QD
     Route: 048
  8. TESSALON [Concomitant]
     Indication: PRODUCT USED FOR UNKNOWN INDICATION
     Dosage: 100 MG, BID
     Route: 048
  9. RANITIDINE HCL [Concomitant]
     Indication: PRODUCT USED FOR UNKNOWN INDICATION
     Dosage: 150 MG, BID
     Route: 048

REACTIONS (19)
  - FAILURE TO THRIVE [None]
  - DIARRHOEA [None]
  - DRY SKIN [None]
  - PULMONARY EMBOLISM [None]
  - RASH [None]
  - ANAEMIA [None]
  - VISION BLURRED [None]
  - RENAL FAILURE ACUTE [None]
  - VITREOUS FLOATERS [None]
  - ARTHRALGIA [None]
  - ERYTHEMA [None]
  - WHITE BLOOD CELLS URINE [None]
  - THERAPEUTIC RESPONSE DECREASED [None]
  - CARDIOMEGALY [None]
  - BACK PAIN [None]
  - RESPIRATORY FAILURE [None]
  - BLOOD PRESSURE INCREASED [None]
  - CELLULITIS [None]
  - RENAL CYST [None]
